FAERS Safety Report 11234827 (Version 7)
Quarter: 2017Q2

REPORT INFORMATION
  Report Type: Spontaneous
  Country: US (occurrence: US)
  Receive Date: 20150702
  Receipt Date: 20170404
  Transmission Date: 20170829
  Serious: Yes (Hospitalization)
  Sender: FDA-Public Use
  Company Number: US-DSJP-DSU-2015-120457

PATIENT
  Age: 77 Year
  Sex: Female
  Weight: 58.96 kg

DRUGS (6)
  1. BENICAR HCT [Suspect]
     Active Substance: HYDROCHLOROTHIAZIDE\OLMESARTAN MEDOXOMIL
     Indication: HYPERTENSION
     Dosage: 40/25 MG, QD
     Route: 048
     Dates: start: 200810, end: 201207
  2. BENICAR [Suspect]
     Active Substance: OLMESARTAN MEDOXOMIL
     Dosage: 40 MG HALF TABLET, QD
     Route: 048
  3. BENICAR [Suspect]
     Active Substance: OLMESARTAN MEDOXOMIL
     Indication: HYPERTENSION
     Dosage: 40 MG, QD
     Route: 048
     Dates: start: 201208, end: 20140611
  4. BENICAR [Suspect]
     Active Substance: OLMESARTAN MEDOXOMIL
     Dosage: 20 MG, QD
     Route: 048
     Dates: start: 20140611, end: 20140805
  5. NSAID^S [Concomitant]
     Active Substance: UNSPECIFIED INGREDIENT
     Indication: PRODUCT USED FOR UNKNOWN INDICATION
     Dosage: UNK
     Dates: start: 2005, end: 2015
  6. HYDROCHLOROTHIAZIDE. [Concomitant]
     Active Substance: HYDROCHLOROTHIAZIDE
     Indication: PRODUCT USED FOR UNKNOWN INDICATION
     Dosage: 12.5 MG TO 25 MG, QD
     Dates: start: 200901, end: 201401

REACTIONS (15)
  - Proctalgia [Recovered/Resolved]
  - Alopecia [Not Recovered/Not Resolved]
  - Drug administration error [Unknown]
  - Malabsorption [Recovering/Resolving]
  - Coeliac disease [Recovering/Resolving]
  - Hypotension [Recovering/Resolving]
  - Deep vein thrombosis [Recovered/Resolved]
  - Acute kidney injury [Not Recovered/Not Resolved]
  - Diverticulum [Not Recovered/Not Resolved]
  - Haemorrhoids [Not Recovered/Not Resolved]
  - Hiatus hernia [Unknown]
  - Thyroid disorder [Not Recovered/Not Resolved]
  - Conjunctival disorder [Not Recovered/Not Resolved]
  - Clostridium test positive [Unknown]
  - Large intestine polyp [Recovered/Resolved]

NARRATIVE: CASE EVENT DATE: 2012
